FAERS Safety Report 16645639 (Version 1)
Quarter: 2019Q3

REPORT INFORMATION
  Report Type: Spontaneous
  Country: DE (occurrence: DE)
  Receive Date: 20190730
  Receipt Date: 20190730
  Transmission Date: 20191004
  Serious: Yes (Hospitalization, Other)
  Sender: FDA-Public Use
  Company Number: DE-AUROBINDO-AUR-APL-2018-027463

PATIENT

DRUGS (11)
  1. ATORVASTATIN [Concomitant]
     Active Substance: ATORVASTATIN
     Indication: PRODUCT USED FOR UNKNOWN INDICATION
     Dosage: UNK
     Route: 065
  2. APIXABAN [Interacting]
     Active Substance: APIXABAN
     Dosage: UNK
     Route: 048
  3. PHENPROCOUMON [Suspect]
     Active Substance: PHENPROCOUMON
     Indication: ANTICOAGULANT THERAPY
     Dosage: MOST RECENTLY THREE-QUARTER TABLET OF 3 MG OF MARCUMAR DAILY ()
     Route: 048
     Dates: start: 2016
  4. ACETYLSALICYLIC ACID [Interacting]
     Active Substance: ASPIRIN
     Indication: ANTIPLATELET THERAPY
  5. IBUPROFEN. [Suspect]
     Active Substance: IBUPROFEN
     Dosage: 600 MG, UNK
     Route: 065
  6. APIXABAN [Interacting]
     Active Substance: APIXABAN
     Indication: VASCULAR STENT THROMBOSIS
     Dosage: 5 MG, BID
     Route: 048
  7. APIXABAN [Interacting]
     Active Substance: APIXABAN
     Indication: ANTICOAGULANT THERAPY
     Dosage: 5 MG, BID
     Route: 048
  8. ACETYLSALICYLIC ACID [Interacting]
     Active Substance: ASPIRIN
     Indication: VASCULAR STENT THROMBOSIS
     Dosage: 100 MG, QD
     Route: 065
  9. PHENPROCOUMON [Suspect]
     Active Substance: PHENPROCOUMON
     Indication: VASCULAR STENT THROMBOSIS
     Dosage: MOST RECENTLY THREE-QUARTER TABLET OF 3 MG OF MARCUMAR DAILY
     Route: 048
     Dates: start: 2006
  10. IBUPROFEN. [Suspect]
     Active Substance: IBUPROFEN
     Indication: PAIN
     Dosage: 600 MG, PRN ; AS NECESSARY
     Route: 065
  11. VALSARTAN. [Concomitant]
     Active Substance: VALSARTAN
     Indication: HYPERTENSION
     Dosage: UNK
     Route: 065

REACTIONS (10)
  - Anaemia [Recovered/Resolved]
  - Rectal haemorrhage [Recovered/Resolved]
  - Labelled drug-drug interaction medication error [Unknown]
  - Lower gastrointestinal haemorrhage [Unknown]
  - Intentional product use issue [Recovered/Resolved]
  - Sinus tachycardia [Recovered/Resolved]
  - Asthenia [Unknown]
  - Large intestinal haemorrhage [Unknown]
  - Contraindicated product administered [Unknown]
  - Off label use [Unknown]
